FAERS Safety Report 5557840-5 (Version None)
Quarter: 2008Q1

REPORT INFORMATION
  Report Type: 
  Country: None (occurrence: None)
  Receive Date: 20071214
  Receipt Date: 20071204
  Transmission Date: 20080703
  Serious: Yes (Hospitalization)
  Sender: FDA-Public Use
  Company Number: US-JNJFOC-20070604439

PATIENT
  Age: 53 Year
  Sex: Male

DRUGS (22)
  1. PREZISTA [Suspect]
     Route: 048
  2. PREZISTA [Suspect]
     Indication: HIV INFECTION
     Route: 048
  3. ISENTRESS [Suspect]
     Route: 048
  4. ISENTRESS [Suspect]
     Indication: HIV INFECTION
     Route: 048
  5. STAVUDINE [Suspect]
     Route: 048
  6. STAVUDINE [Suspect]
     Indication: HIV INFECTION
     Route: 048
  7. EPZICOM [Suspect]
     Route: 048
  8. EPZICOM [Suspect]
     Indication: HIV INFECTION
     Route: 048
  9. TENOFOVIR DISOPROXIL FUMARATE [Suspect]
     Route: 048
  10. TENOFOVIR DISOPROXIL FUMARATE [Suspect]
     Indication: HIV INFECTION
     Route: 048
  11. RITONAVIR [Suspect]
     Route: 065
  12. RITONAVIR [Suspect]
     Indication: HIV INFECTION
     Route: 065
  13. LOPERAMIDE HCL [Concomitant]
     Route: 065
  14. CHLORPHENIRAMINE MALEATE [Concomitant]
     Route: 065
  15. AZITHROMYCIN [Concomitant]
     Route: 065
  16. ETHAMBUTOL HCL [Concomitant]
     Route: 065
  17. FLUCONAZOLE [Concomitant]
     Route: 065
  18. LORAZEPAM [Concomitant]
     Route: 065
  19. OMEPRAZOLE [Concomitant]
     Route: 065
  20. RIFABUTIN [Concomitant]
     Route: 065
  21. OXYCODONE AND ACETAMINOPHEN [Concomitant]
     Route: 065
  22. SULFAMETHOXAZOLE AND TRIMETHOPRIM [Concomitant]
     Route: 065

REACTIONS (2)
  - HEADACHE [None]
  - IMMUNE RECONSTITUTION SYNDROME [None]
